FAERS Safety Report 8892463 (Version 2)
Quarter: 2012Q4

REPORT INFORMATION
  Report Type: 
  Country: LT (occurrence: LT)
  Receive Date: 20121107
  Receipt Date: 20121219
  Transmission Date: 20130627
  Serious: Yes (Other)
  Sender: FDA-Public Use
  Company Number: LT-ELI_LILLY_AND_COMPANY-LT201211001707

PATIENT
  Sex: Female

DRUGS (2)
  1. ZYPREXA VELOTAB [Suspect]
     Indication: SCHIZOPHRENIA
     Dosage: 10 mg, qd
     Route: 048
     Dates: start: 2006
  2. DICLOFENAC [Concomitant]
     Dosage: UNK UNK, prn

REACTIONS (1)
  - Retinal vein thrombosis [Unknown]
